FAERS Safety Report 8053627-2 (Version None)
Quarter: 2012Q1

REPORT INFORMATION
  Report Type: 
  Country: None (occurrence: None)
  Receive Date: 20120118
  Receipt Date: 20120105
  Transmission Date: 20120608
  Serious: Yes (Other)
  Sender: FDA-Public Use
  Company Number: US-RB-032990-12

PATIENT
  Age: 63 Year
  Sex: Female

DRUGS (4)
  1. BETA BLOCKER [Concomitant]
     Indication: BLOOD PRESSURE
  2. GUAIFENESIN [Concomitant]
     Indication: PRODUCT USED FOR UNKNOWN INDICATION
  3. ALTACE [Concomitant]
     Indication: BLOOD PRESSURE
  4. MUCINEX DM [Suspect]
     Indication: PRODUCT USED FOR UNKNOWN INDICATION
     Route: 048

REACTIONS (1)
  - BLOOD PRESSURE INCREASED [None]
